FAERS Safety Report 18457980 (Version 2)
Quarter: 2022Q1

REPORT INFORMATION
  Report Type: Spontaneous
  Country: US (occurrence: US)
  Receive Date: 20201103
  Receipt Date: 20220214
  Transmission Date: 20220423
  Serious: Yes (Other)
  Sender: FDA-Public Use
  Company Number: US-PFIZER INC-2020423427

PATIENT
  Age: 81 Year
  Sex: Female

DRUGS (2)
  1. RITUXIMAB [Suspect]
     Active Substance: RITUXIMAB
     Dosage: 641 MG, CYCLIC (TOTAL OF 4 CYCLES)
  2. RITUXIMAB [Suspect]
     Active Substance: RITUXIMAB
     Dosage: UNK, CYCLIC (MAINTENANCE THERAPY AT A DOSE OF 375 MG/M2, 641 MG ADMINISTERED EVERY 8 WEEKS)

REACTIONS (1)
  - Tuberculosis [Unknown]
